FAERS Safety Report 10304305 (Version 3)
Quarter: 2015Q2

REPORT INFORMATION
  Report Type: Report from Study
  Country: GB (occurrence: GB)
  Receive Date: 20140715
  Receipt Date: 20150519
  Transmission Date: 20150821
  Serious: Yes (Life-Threatening, Hospitalization)
  Sender: FDA-Public Use
  Company Number: GB-ROCHE-1303590

PATIENT
  Age: 61 Year
  Sex: Male
  Weight: 69 kg

DRUGS (5)
  1. CAPECITABINE. [Suspect]
     Active Substance: CAPECITABINE
     Indication: GASTROOESOPHAGEAL CANCER
     Dosage: MOST RECENT DOSE PRIOR TO SAE: 12/APR/2013
     Route: 048
     Dates: start: 20130214
  2. CISPLATIN. [Suspect]
     Active Substance: CISPLATIN
     Indication: GASTROOESOPHAGEAL CANCER
     Dosage: MOST RECENT DOSE PRIOR TO SAE: 12/APR/2013
     Route: 042
     Dates: start: 20130214
  3. BEVACIZUMAB [Suspect]
     Active Substance: BEVACIZUMAB
     Indication: GASTROOESOPHAGEAL CANCER
     Dosage: MOST RECENT DOSE PRIOR TO SAE: 12/APR/2013
     Route: 042
     Dates: start: 20130214
  4. EPIRUBICIN [Suspect]
     Active Substance: EPIRUBICIN
     Indication: GASTROOESOPHAGEAL CANCER
     Dosage: MOST RECENT DOSE PRIOR TO SAE: 12/APR/2013
     Route: 042
     Dates: start: 20130214
  5. OMNIPAQUE [Suspect]
     Active Substance: IOHEXOL
     Indication: PRODUCT USED FOR UNKNOWN INDICATION
     Route: 065
     Dates: start: 20130607

REACTIONS (4)
  - Oxygen saturation decreased [Recovered/Resolved]
  - Anastomotic leak [Recovered/Resolved]
  - Pneumonia [Recovered/Resolved]
  - Anaphylactic reaction [Recovered/Resolved]

NARRATIVE: CASE EVENT DATE: 20130607
